FAERS Safety Report 6816640-6 (Version None)
Quarter: 2010Q3

REPORT INFORMATION
  Report Type: 
  Country: None (occurrence: None)
  Receive Date: 20100706
  Receipt Date: 20100622
  Transmission Date: 20110219
  Serious: Yes (Other)
  Sender: FDA-Public Use
  Company Number: US-JNJFOC-20100608003

PATIENT
  Sex: Female

DRUGS (2)
  1. CONCENTRATED MOTRIN INFANTS DROPS [Suspect]
     Route: 048
  2. CONCENTRATED MOTRIN INFANTS DROPS [Suspect]
     Indication: PYREXIA
     Dosage: ABOUT 2.3 ML ONCE TOTAL
     Route: 048

REACTIONS (4)
  - DRUG INEFFECTIVE [None]
  - FEBRILE CONVULSION [None]
  - INCORRECT DOSE ADMINISTERED [None]
  - PRODUCT QUALITY ISSUE [None]
